FAERS Safety Report 5107369-3 (Version None)
Quarter: 2006Q3

REPORT INFORMATION
  Report Type: 
  Country: None (occurrence: None)
  Receive Date: 20060914
  Receipt Date: 20060818
  Transmission Date: 20061208
  Serious: Yes (Hospitalization, Other)
  Sender: FDA-Public Use
  Company Number: 2006104448

PATIENT
  Age: 62 Year
  Sex: Female
  Weight: 109.7705 kg

DRUGS (1)
  1. BEXTRA [Suspect]
     Indication: ARTHRITIS
     Dosage: 20 MG (20 MG, 1 IN 1 D),
     Dates: start: 20040611, end: 20050418

REACTIONS (4)
  - CEREBROVASCULAR ACCIDENT [None]
  - DYSPHASIA [None]
  - HEMIPLEGIA [None]
  - VISION BLURRED [None]
